FAERS Safety Report 5258128-2 (Version None)
Quarter: 2007Q1

REPORT INFORMATION
  Report Type: 
  Country: None (occurrence: None)
  Receive Date: 20070307
  Receipt Date: 20070301
  Transmission Date: 20070707
  Serious: Yes (Hospitalization)
  Sender: FDA-Public Use
  Company Number: JP-BOEHRINGER INGELHEIM PHARMACEUTICALS, INC.-2007-BP-02179NB

PATIENT
  Sex: Female
  Weight: 54 kg

DRUGS (2)
  1. MICARDIS [Suspect]
     Indication: HYPERTENSION
     Route: 048
     Dates: start: 20060619, end: 20060724
  2. ASPENON [Suspect]
     Indication: ARRHYTHMIA
     Route: 048
     Dates: start: 20060619, end: 20060724

REACTIONS (3)
  - CHOLESTASIS [None]
  - DRUG ERUPTION [None]
  - GRANULOCYTOPENIA [None]
